FAERS Safety Report 8166738-8 (Version None)
Quarter: 2012Q1

REPORT INFORMATION
  Report Type: 
  Country: None (occurrence: None)
  Receive Date: 20120227
  Receipt Date: 20120217
  Transmission Date: 20120608
  Serious: Yes (Other)
  Sender: FDA-Public Use
  Company Number: HR-SANOFI-AVENTIS-2012SA011416

PATIENT
  Age: 58 Year
  Sex: Male
  Weight: 100 kg

DRUGS (7)
  1. INDAPAMIDE [Suspect]
     Indication: HYPERTENSION
     Route: 048
     Dates: start: 20110530, end: 20110601
  2. NORVASC [Concomitant]
     Dates: start: 20090101
  3. GLUFORMIN [Concomitant]
     Dates: start: 20050101
  4. BISOPROLOL FUMARATE [Concomitant]
     Dates: start: 20090101
  5. ROSUVASTATIN CALCIUM [Suspect]
     Indication: HYPERCHOLESTEROLAEMIA
     Route: 048
     Dates: start: 20110530, end: 20110601
  6. VALSARTAN [Suspect]
     Indication: HYPERTENSION
     Route: 048
     Dates: start: 20110530, end: 20110601
  7. AMARYL [Concomitant]
     Dates: start: 20050101

REACTIONS (3)
  - FACE OEDEMA [None]
  - OEDEMA PERIPHERAL [None]
  - ANGIOEDEMA [None]
